FAERS Safety Report 21225539 (Version 4)
Quarter: 2022Q3

REPORT INFORMATION
  Report Type: Spontaneous
  Country: US (occurrence: US)
  Receive Date: 20220818
  Receipt Date: 20220922
  Transmission Date: 20221026
  Serious: No
  Sender: FDA-Public Use
  Company Number: US-JNJFOC-20220830330

PATIENT
  Age: 69 Year
  Sex: Female
  Weight: 72.640 kg

DRUGS (4)
  1. STELARA [Suspect]
     Active Substance: USTEKINUMAB
     Indication: Psoriasis
     Route: 058
     Dates: start: 2018
  2. STELARA [Suspect]
     Active Substance: USTEKINUMAB
  3. LEVOTHYROXINE [Concomitant]
     Active Substance: LEVOTHYROXINE
  4. ESTRADIOL [Concomitant]
     Active Substance: ESTRADIOL

REACTIONS (3)
  - Syringe issue [Unknown]
  - Product dose omission issue [Unknown]
  - Psoriasis [Unknown]

NARRATIVE: CASE EVENT DATE: 20220801
